FAERS Safety Report 6423660-2 (Version None)
Quarter: 2009Q4

REPORT INFORMATION
  Report Type: 
  Country: None (occurrence: None)
  Receive Date: 20091102
  Receipt Date: 20091020
  Transmission Date: 20100525
  Serious: Yes (Hospitalization)
  Sender: FDA-Public Use
  Company Number: PT-MERCK-0910PRT00009

PATIENT
  Age: 47 Year
  Sex: Male

DRUGS (19)
  1. STOCRIN [Suspect]
     Indication: ANTIRETROVIRAL THERAPY
     Route: 065
     Dates: start: 20030201, end: 20051101
  2. INDINAVIR [Suspect]
     Indication: HIV INFECTION
     Route: 065
     Dates: start: 19970401, end: 19980601
  3. ZIDOVUDINE [Concomitant]
     Indication: HIV INFECTION
     Route: 065
     Dates: start: 19960715, end: 19961201
  4. DIDANOSINE [Concomitant]
     Indication: HIV INFECTION
     Route: 065
     Dates: start: 19970122, end: 19980601
  5. DIDANOSINE [Concomitant]
     Route: 065
     Dates: start: 20011001, end: 20020501
  6. LAMIVUDINE AND NEVIRAPINE AND STAVUDINE [Concomitant]
     Indication: HIV INFECTION
     Route: 065
     Dates: start: 19980601, end: 20001101
  7. TENOFOVIR [Concomitant]
     Indication: HIV INFECTION
     Route: 065
     Dates: start: 20020501
  8. STAVUDINE [Concomitant]
     Indication: HIV INFECTION
     Route: 065
     Dates: start: 19980601, end: 20001101
  9. STAVUDINE [Concomitant]
     Route: 065
     Dates: start: 20011001, end: 20020501
  10. NELFINAVIR MESYLATE [Concomitant]
     Indication: HIV INFECTION
     Route: 065
     Dates: start: 19980601, end: 20001101
  11. NEVIRAPINE [Concomitant]
     Indication: HIV INFECTION
     Route: 065
     Dates: start: 20011001, end: 20020501
  12. RITONAVIR [Concomitant]
     Indication: HIV INFECTION
     Route: 065
     Dates: start: 20030201
  13. LOPINAVIR [Concomitant]
     Indication: HIV INFECTION
     Route: 065
     Dates: start: 20030201, end: 20051101
  14. ASPIRIN [Concomitant]
     Indication: CORONARY ARTERY DISEASE
     Route: 065
     Dates: start: 20030723
  15. CLOPIDOGREL BISULFATE [Concomitant]
     Indication: CORONARY ARTERY DISEASE
     Route: 065
     Dates: start: 20030723
  16. SIMVASTATIN [Concomitant]
     Indication: CORONARY ARTERY DISEASE
     Route: 065
     Dates: start: 20030723
  17. ATENOLOL [Concomitant]
     Indication: CORONARY ARTERY DISEASE
     Route: 065
     Dates: start: 20030723
  18. ABACAVIR SULFATE [Concomitant]
     Indication: CORONARY ARTERY DISEASE
     Route: 065
     Dates: start: 20051101
  19. TIPRANAVIR [Concomitant]
     Indication: HIV INFECTION
     Route: 065
     Dates: start: 20051101

REACTIONS (7)
  - ABDOMINAL DISTENSION [None]
  - CHEST PAIN [None]
  - CORONARY ARTERY DISEASE [None]
  - HYPERHIDROSIS [None]
  - LIPIDS ABNORMAL [None]
  - MYOCARDIAL INFARCTION [None]
  - PALPITATIONS [None]
